FAERS Safety Report 8804972 (Version 1)
Quarter: 2012Q4

REPORT INFORMATION
  Report Type: Report from Study
  Country: DE (occurrence: DE)
  Receive Date: 20120924
  Receipt Date: 20120924
  Transmission Date: 20130627
  Serious: Yes (Death, Hospitalization, Other)
  Sender: FDA-Public Use
  Company Number: DE-ROCHE-1125297

PATIENT
  Sex: Male

DRUGS (3)
  1. ROACTEMRA [Suspect]
     Indication: RHEUMATOID ARTHRITIS
     Route: 065
     Dates: start: 201005, end: 201011
  2. ABATACEPT [Suspect]
     Indication: RHEUMATOID ARTHRITIS
     Route: 065
     Dates: start: 201101, end: 201108
  3. LEFLUNOMIDE [Concomitant]
     Route: 065
     Dates: start: 200707, end: 201108

REACTIONS (7)
  - Cardiac failure congestive [Fatal]
  - Rheumatoid arthritis [Unknown]
  - Vasculitis [Unknown]
  - Anaemia [Unknown]
  - Thrombocytopenia [Unknown]
  - Altered state of consciousness [Unknown]
  - Muscle spasms [Unknown]
